FAERS Safety Report 8452556-X (Version None)
Quarter: 2012Q2

REPORT INFORMATION
  Report Type: 
  Country: None (occurrence: None)
  Receive Date: 20120620
  Receipt Date: 20120416
  Transmission Date: 20120825
  Serious: No
  Sender: FDA-Public Use
  Company Number: US-VERTEX PHARMACEUTICALS INC.-AE-2012-005490

PATIENT
  Sex: Male

DRUGS (8)
  1. PEGASYS [Concomitant]
     Indication: HEPATITIS C
     Route: 058
     Dates: start: 20120323
  2. TRAMADOL HCL [Concomitant]
     Route: 048
  3. BACLOFEN [Concomitant]
     Route: 048
  4. RIBAVIRIN [Concomitant]
     Indication: HEPATITIS C
     Route: 048
     Dates: start: 20120323
  5. GABAPENTIN [Concomitant]
     Route: 048
  6. INCIVEK [Suspect]
     Indication: HEPATITIS C
     Route: 048
     Dates: start: 20120323
  7. FOLIC ACID [Concomitant]
     Route: 048
  8. LISINOPRIL [Concomitant]
     Route: 048

REACTIONS (1)
  - NAUSEA [None]
